FAERS Safety Report 26007539 (Version 1)
Quarter: 2025Q4

REPORT INFORMATION
  Report Type: Spontaneous
  Country: US (occurrence: None)
  Receive Date: 20251106
  Receipt Date: 20251106
  Transmission Date: 20260117
  Serious: Yes (Hospitalization, Disabling, Other)
  Sender: FDA-CTU
  Company Number: None

PATIENT
  Age: 62 Year
  Sex: Male
  Weight: 80.55 kg

DRUGS (10)
  1. REZDIFFRA [Suspect]
     Active Substance: RESMETIROM
     Indication: Hepatic fibrosis
     Dates: start: 20250315, end: 20250513
  2. PRIMIDONE [Concomitant]
     Active Substance: PRIMIDONE
  3. PANTOPRAZOLE [Concomitant]
     Active Substance: PANTOPRAZOLE
  4. PREDNISONE [Concomitant]
     Active Substance: PREDNISONE
  5. TAMSULOSIN [Concomitant]
     Active Substance: TAMSULOSIN
  6. FLUCONAZOLE [Concomitant]
     Active Substance: FLUCONAZOLE
  7. MIRTAZAPINE [Concomitant]
     Active Substance: MIRTAZAPINE
  8. Centrum multivitamin [Concomitant]
  9. ASPIRIN [Concomitant]
     Active Substance: ASPIRIN
  10. NM-6603 [Concomitant]
     Active Substance: NM-6603

REACTIONS (11)
  - Night sweats [None]
  - Insomnia [None]
  - Weight decreased [None]
  - Loss of personal independence in daily activities [None]
  - Nephrolithiasis [None]
  - Tremor [None]
  - Drug-induced liver injury [None]
  - Hepatitis [None]
  - Coccidioidomycosis [None]
  - Epstein-Barr virus infection [None]
  - Syphilis [None]

NARRATIVE: CASE EVENT DATE: 20250401
